FAERS Safety Report 5700519-7 (Version None)
Quarter: 2008Q2

REPORT INFORMATION
  Report Type: 
  Country: None (occurrence: None)
  Receive Date: 20080410
  Receipt Date: 20080328
  Transmission Date: 20081010
  Serious: Yes (Other)
  Sender: FDA-Public Use
  Company Number: JP-PFIZER INC-2008029474

PATIENT
  Age: 61 Year
  Sex: Male

DRUGS (2)
  1. IDAMYCIN [Suspect]
     Dosage: DAILY DOSE:19MG
     Route: 042
  2. CYLOCIDE [Concomitant]
     Route: 042

REACTIONS (4)
  - BLOOD CREATINE PHOSPHOKINASE INCREASED [None]
  - CARDIOVASCULAR DISORDER [None]
  - FACE OEDEMA [None]
  - OEDEMA PERIPHERAL [None]
